FAERS Safety Report 9725390 (Version 2)
Quarter: 2014Q1

REPORT INFORMATION
  Report Type: Spontaneous
  Country: US (occurrence: None)
  Receive Date: 20131129
  Receipt Date: 20140328
  Transmission Date: 20141002
  Serious: Yes (Other)
  Sender: FDA-Public Use
  Company Number: 2013-US-003663

PATIENT
  Age: 35 Year
  Sex: Female

DRUGS (3)
  1. XYREM [Suspect]
     Indication: NARCOLEPSY
     Dosage: 2.25 G, BID, ORAL
     Route: 048
     Dates: start: 201111
  2. XYREM [Suspect]
     Indication: CATAPLEXY
     Dosage: 2.25 G, BID, ORAL
     Route: 048
     Dates: start: 201111
  3. OXYCODONE HYDROCHL ORIDE (OXYCODONE HYDROCHLORIDE) [Suspect]
     Indication: PAIN
     Dates: start: 20131101, end: 20131104

REACTIONS (3)
  - Abortion spontaneous [None]
  - Pain [None]
  - Exposure during pregnancy [None]
